FAERS Safety Report 9293710 (Version 1)
Quarter: 2013Q2

REPORT INFORMATION
  Report Type: Spontaneous
  Country: US (occurrence: US)
  Receive Date: 20130516
  Receipt Date: 20130516
  Transmission Date: 20140414
  Serious: Yes (Other)
  Sender: FDA-Public Use
  Company Number: US-JNJFOC-20130504995

PATIENT
  Sex: Female

DRUGS (3)
  1. REMICADE [Suspect]
     Indication: CROHN^S DISEASE
     Dosage: 2 INFUSIONS BEFORE THE PRESENT INFUSION
     Route: 042
     Dates: start: 2013
  2. REMICADE [Suspect]
     Indication: CROHN^S DISEASE
     Route: 042
     Dates: start: 2013
  3. REMICADE [Suspect]
     Indication: CROHN^S DISEASE
     Route: 042
     Dates: start: 2012

REACTIONS (4)
  - Respiratory disorder [Recovered/Resolved]
  - Infusion related reaction [Recovered/Resolved]
  - Type IV hypersensitivity reaction [Recovered/Resolved]
  - Myalgia [Recovered/Resolved]
